FAERS Safety Report 25029653 (Version 1)
Quarter: 2025Q1

REPORT INFORMATION
  Report Type: Spontaneous
  Country: US (occurrence: US)
  Receive Date: 20250303
  Receipt Date: 20250303
  Transmission Date: 20250409
  Serious: No
  Sender: Haleon PLC
  Company Number: US-HALEON-2230351

PATIENT
  Age: 87 Year
  Sex: Female

DRUGS (1)
  1. VOLTAREN ARTHRITIS PAIN [Suspect]
     Active Substance: DICLOFENAC SODIUM
     Indication: Pain
     Dates: start: 20250224, end: 20250225

REACTIONS (3)
  - Malaise [Unknown]
  - Defaecation urgency [Unknown]
  - Inappropriate schedule of product administration [Unknown]

NARRATIVE: CASE EVENT DATE: 20250224
